FAERS Safety Report 4733419-X (Version None)
Quarter: 2005Q3

REPORT INFORMATION
  Report Type: 
  Country: None (occurrence: None)
  Receive Date: 20050729
  Receipt Date: 20050722
  Transmission Date: 20060218
  Serious: Yes (Other)
  Sender: FDA-Public Use
  Company Number: 142683USA

PATIENT
  Sex: 0

DRUGS (2)
  1. PIMOZIDE [Suspect]
     Dosage: 2 MILLIGRAM ORAL
     Route: 048
  2. CLOZAPINE [Concomitant]

REACTIONS (2)
  - ATRIAL FIBRILLATION [None]
  - ELECTROCARDIOGRAM QT PROLONGED [None]
